FAERS Safety Report 10527294 (Version 4)
Quarter: 2015Q1

REPORT INFORMATION
  Report Type: Report from Study
  Country: AT (occurrence: AT)
  Receive Date: 20141020
  Receipt Date: 20150120
  Transmission Date: 20150720
  Serious: Yes (Hospitalization, Disabling, Other)
  Sender: FDA-Public Use
  Company Number: AT-JNJFOC-20130315867

PATIENT
  Age: 85 Year
  Sex: Female
  Weight: 74 kg

DRUGS (16)
  1. LYRICA [Concomitant]
     Active Substance: PREGABALIN
     Route: 065
     Dates: start: 20121129
  2. BEVACIZUMAB [Concomitant]
     Active Substance: BEVACIZUMAB
     Route: 065
     Dates: start: 20130320, end: 20130320
  3. AVASTIN [Concomitant]
     Active Substance: BEVACIZUMAB
     Route: 065
     Dates: start: 20130220, end: 20130220
  4. FLOXAL [Concomitant]
     Active Substance: OFLOXACIN
     Route: 065
     Dates: start: 20130220, end: 20130223
  5. ZANIDIP [Concomitant]
     Active Substance: LERCANIDIPINE HYDROCHLORIDE
     Route: 065
  6. BEVACIZUMAB [Concomitant]
     Active Substance: BEVACIZUMAB
     Route: 065
     Dates: start: 20130417, end: 20130417
  7. AVASTIN [Concomitant]
     Active Substance: BEVACIZUMAB
     Route: 065
     Dates: start: 20130417, end: 20130417
  8. AVASTIN [Concomitant]
     Active Substance: BEVACIZUMAB
     Route: 065
     Dates: start: 20130320, end: 20130320
  9. FLOXEL [Concomitant]
     Route: 065
     Dates: start: 20130417, end: 20130420
  10. FLOXEL [Concomitant]
     Route: 065
     Dates: start: 20130220, end: 20130223
  11. BEVACIZUMAB [Concomitant]
     Active Substance: BEVACIZUMAB
     Route: 065
     Dates: start: 20130220, end: 20130220
  12. RIVAROXABAN [Suspect]
     Active Substance: RIVAROXABAN
     Indication: ATRIAL FIBRILLATION
     Route: 048
     Dates: start: 20121208
  13. RIVAROXABAN [Suspect]
     Active Substance: RIVAROXABAN
     Indication: CEREBROVASCULAR ACCIDENT PROPHYLAXIS
     Route: 048
     Dates: start: 20121208
  14. FORADIL [Concomitant]
     Active Substance: FORMOTEROL FUMARATE
     Route: 065
  15. LASIX [Concomitant]
     Active Substance: FUROSEMIDE
     Route: 065
     Dates: end: 201301
  16. FLOXAL [Concomitant]
     Active Substance: OFLOXACIN
     Route: 065
     Dates: start: 20130417, end: 20130420

REACTIONS (4)
  - Retinal haemorrhage [Not Recovered/Not Resolved]
  - Post procedural haemorrhage [Recovered/Resolved]
  - Vertigo [Recovered/Resolved]
  - Syncope [Recovered/Resolved]

NARRATIVE: CASE EVENT DATE: 20130214
